FAERS Safety Report 5145375-3 (Version None)
Quarter: 2006Q4

REPORT INFORMATION
  Report Type: 
  Country: None (occurrence: None)
  Receive Date: 20061101
  Receipt Date: 20061020
  Transmission Date: 20070319
  Serious: Yes (Death)
  Sender: FDA-Public Use
  Company Number: 056-C5013-06090917

PATIENT
  Age: 49 Year
  Sex: Female

DRUGS (5)
  1. REVLIMID [Suspect]
     Indication: MULTIPLE MYELOMA
     Dosage: 25 MG, FOR 21 DAYS, ORAL
     Route: 048
     Dates: start: 20060712, end: 20060915
  2. DEXAMETHASONE TAB [Suspect]
     Indication: MULTIPLE MYELOMA
     Dosage: 40 MG, ORAL
     Route: 048
  3. POTASSIUM CHLORIDE [Concomitant]
  4. VALACYCLOVIR [Concomitant]
  5. NEORECORMON [Concomitant]

REACTIONS (1)
  - PULMONARY ALVEOLAR HAEMORRHAGE [None]
